FAERS Safety Report 8508656-9 (Version None)
Quarter: 2012Q3

REPORT INFORMATION
  Report Type: 
  Country: None (occurrence: None)
  Receive Date: 20120713
  Receipt Date: 20120709
  Transmission Date: 20120928
  Serious: Yes (Other)
  Sender: FDA-Public Use
  Company Number: US-PFIZER INC-2012165188

PATIENT
  Sex: Female

DRUGS (3)
  1. GABAPENTIN [Suspect]
     Indication: LIMB DISCOMFORT
     Dosage: UNK
  2. NEURONTIN [Suspect]
     Dosage: UNK
  3. LYRICA [Suspect]

REACTIONS (1)
  - DIABETES MELLITUS [None]
